FAERS Safety Report 24949026 (Version 3)
Quarter: 2025Q1

REPORT INFORMATION
  Report Type: Spontaneous
  Country: IT (occurrence: IT)
  Receive Date: 20250210
  Receipt Date: 20250303
  Transmission Date: 20250408
  Serious: Yes (Life-Threatening, Hospitalization, Other)
  Sender: JOHNSON AND JOHNSON
  Company Number: None

PATIENT
  Age: 51 Year
  Sex: Female

DRUGS (2)
  1. RISPERDAL [Suspect]
     Active Substance: RISPERIDONE
     Indication: Product used for unknown indication
     Route: 048
     Dates: start: 20240912, end: 20240912
  2. RISPERDAL [Suspect]
     Active Substance: RISPERIDONE

REACTIONS (4)
  - Drug abuse [Recovered/Resolved]
  - Loss of consciousness [Recovered/Resolved]
  - Intentional self-injury [Recovered/Resolved]
  - Headache [Recovered/Resolved]

NARRATIVE: CASE EVENT DATE: 20240912
